FAERS Safety Report 4985394-0 (Version None)
Quarter: 2006Q1

REPORT INFORMATION
  Report Type: 
  Country: None (occurrence: None)
  Receive Date: 20060309
  Receipt Date: 20051026
  Transmission Date: 20060701
  Serious: Yes (Other)
  Sender: FDA-Public Use
  Company Number: 422559

PATIENT

DRUGS (3)
  1. ACCUTANE [Suspect]
     Indication: ACNE CYSTIC
  2. ISOTRET (ISOTRETINOIN) [Suspect]
     Indication: ACNE CYSTIC
     Dates: start: 20041001, end: 20050214
  3. DEPO-PROVERA [Concomitant]

REACTIONS (1)
  - ABORTION INDUCED [None]
